FAERS Safety Report 6245583-4 (Version None)
Quarter: 2009Q2

REPORT INFORMATION
  Report Type: 
  Country: None (occurrence: None)
  Receive Date: 20090625
  Receipt Date: 20090612
  Transmission Date: 20091009
  Serious: Yes (Hospitalization)
  Sender: FDA-Public Use
  Company Number: MY-GENENTECH-285434

PATIENT
  Sex: Female

DRUGS (5)
  1. BEVACIZUMAB [Suspect]
     Indication: BREAST CANCER
     Dosage: 15 MG/KG, Q3W
     Route: 042
     Dates: start: 20090121
  2. FLUOROURACIL [Suspect]
     Indication: BREAST CANCER
     Dosage: 500 MG/M2, Q3W
     Route: 042
     Dates: start: 20090121
  3. EPIRUBICIN [Suspect]
     Indication: BREAST CANCER
     Dosage: 100 MG/M2, Q3W
     Route: 042
     Dates: start: 20090121
  4. CYCLOPHOSPHAMIDE [Suspect]
     Indication: BREAST CANCER
     Dosage: 500 MG/M2, Q3W
     Route: 042
     Dates: start: 20090121
  5. PACLITAXEL [Suspect]
     Indication: BREAST CANCER
     Dosage: 80-100 MG/M2, UNK
     Route: 042
     Dates: start: 20090415

REACTIONS (1)
  - HAEMORRHOIDS [None]
